FAERS Safety Report 24582934 (Version 2)
Quarter: 2024Q4

REPORT INFORMATION
  Report Type: Spontaneous
  Country: US (occurrence: US)
  Receive Date: 20241106
  Receipt Date: 20241211
  Transmission Date: 20250114
  Serious: No
  Sender: BAXTER
  Company Number: US-BAXTER-2024BAX026971

PATIENT

DRUGS (1)
  1. DAPTOMYCIN [Suspect]
     Active Substance: DAPTOMYCIN
     Dosage: UNK
     Route: 065

REACTIONS (1)
  - No adverse event [Unknown]
